FAERS Safety Report 8333575-0 (Version None)
Quarter: 2012Q2

REPORT INFORMATION
  Report Type: 
  Country: None (occurrence: None)
  Receive Date: 20120503
  Receipt Date: 20120424
  Transmission Date: 20120825
  Serious: Yes (Other)
  Sender: FDA-Public Use
  Company Number: PHHY2012DE035161

PATIENT
  Sex: Male

DRUGS (1)
  1. CLOZAPINE [Suspect]
     Dosage: 85 MG, QD
     Route: 048

REACTIONS (3)
  - DISTURBANCE IN ATTENTION [None]
  - PSYCHOTIC DISORDER [None]
  - COORDINATION ABNORMAL [None]
